FAERS Safety Report 7903818-3 (Version None)
Quarter: 2011Q4

REPORT INFORMATION
  Report Type: 
  Country: None (occurrence: None)
  Receive Date: 20111109
  Receipt Date: 20111102
  Transmission Date: 20120403
  Serious: Yes (Death, Other)
  Sender: FDA-Public Use
  Company Number: GB-BRISTOL-MYERS SQUIBB COMPANY-16174112

PATIENT
  Age: 43 Year
  Sex: Male
  Weight: 70 kg

DRUGS (8)
  1. ATAZANAVIR [Suspect]
     Indication: HIV INFECTION
     Route: 048
     Dates: start: 20050101, end: 20111001
  2. RALTEGRAVIR [Suspect]
     Indication: HIV INFECTION
     Dates: start: 20080901, end: 20111001
  3. LAMIVUDINE (EPIVIR HBV) [Suspect]
     Indication: HIV INFECTION
     Dates: start: 20071101, end: 20111001
  4. ATORVASTATIN [Concomitant]
     Indication: HYPERLIPIDAEMIA
     Dates: start: 20060101
  5. ENALAPRIL MALEATE [Concomitant]
     Indication: HYPERTENSION
  6. BENPERIDOL [Concomitant]
     Indication: PSYCHIATRIC SYMPTOM
     Dates: start: 20060101
  7. QUETIAPINE [Concomitant]
     Indication: PSYCHIATRIC SYMPTOM
     Dates: start: 20060101
  8. RITONAVIR [Suspect]
     Indication: HIV INFECTION
     Dates: start: 20050101, end: 20111001

REACTIONS (3)
  - LOWER RESPIRATORY TRACT INFECTION [None]
  - RENAL FAILURE [None]
  - NEPHROLITHIASIS [None]
